FAERS Safety Report 5268848-1 (Version None)
Quarter: 2007Q1

REPORT INFORMATION
  Report Type: 
  Country: None (occurrence: None)
  Receive Date: 20061213
  Receipt Date: 20031201
  Transmission Date: 20070707
  Serious: Yes (Other)
  Sender: FDA-Public Use
  Company Number: 2003UW14279

PATIENT
  Age: 81 Year
  Sex: Female
  Weight: 69.4003 kg

DRUGS (7)
  1. IRESSA [Suspect]
     Indication: NON-SMALL CELL LUNG CANCER
     Dates: start: 20030912, end: 20031027
  2. DIGOXIN [Concomitant]
  3. PLAVIX [Concomitant]
  4. NEXIUM [Concomitant]
  5. ASPIRIN [Concomitant]
  6. SYNTHROID [Concomitant]
  7. LIPITOR [Concomitant]

REACTIONS (2)
  - ABDOMINAL PAIN [None]
  - DIARRHOEA [None]
